FAERS Safety Report 9152801 (Version 2)
Quarter: 2013Q2

REPORT INFORMATION
  Report Type: Spontaneous
  Country: GB (occurrence: GB)
  Receive Date: 20130309
  Receipt Date: 20130624
  Transmission Date: 20140414
  Serious: Yes (Other)
  Sender: FDA-Public Use
  Company Number: GB-ABBOTT-13X-167-1059392-00

PATIENT
  Sex: Female

DRUGS (4)
  1. LEVOTHYROXINE [Suspect]
     Indication: PRODUCT USED FOR UNKNOWN INDICATION
  2. LANSOPRAZOLE [Suspect]
     Indication: GASTROOESOPHAGEAL REFLUX DISEASE
  3. LANSOPRAZOLE [Suspect]
     Indication: DYSPEPSIA
  4. CARBOCISTEINE [Suspect]
     Indication: PRODUCT USED FOR UNKNOWN INDICATION
     Route: 048

REACTIONS (8)
  - Oral neoplasm [Unknown]
  - Throat lesion [Unknown]
  - Mucosal inflammation [Unknown]
  - Rash pustular [Unknown]
  - Rash [Unknown]
  - Aphagia [Unknown]
  - Dysphonia [Unknown]
  - Fatigue [Unknown]
